FAERS Safety Report 5272018-0 (Version None)
Quarter: 2007Q1

REPORT INFORMATION
  Report Type: 
  Country: None (occurrence: None)
  Receive Date: 20061214
  Receipt Date: 20060807
  Transmission Date: 20070707
  Serious: Yes (Hospitalization, Other)
  Sender: FDA-Public Use
  Company Number: 2006019400

PATIENT
  Age: 64 Year
  Sex: Male
  Weight: 83.9154 kg

DRUGS (2)
  1. BEXTRA [Suspect]
     Indication: ANALGESIC EFFECT
     Dosage: 10 MG (10 MG,1 IN  1D)
     Dates: start: 20030321
  2. BEXTRA [Suspect]
     Indication: ARTHRITIS
     Dosage: 10 MG (10 MG,1 IN  1D)
     Dates: start: 20030321

REACTIONS (1)
  - MYOCARDIAL INFARCTION [None]
